FAERS Safety Report 6969299-1 (Version None)
Quarter: 2010Q3

REPORT INFORMATION
  Report Type: 
  Country: None (occurrence: None)
  Receive Date: 20100907
  Receipt Date: 20100826
  Transmission Date: 20110219
  Serious: Yes (Disabling, Other)
  Sender: FDA-Public Use
  Company Number: US-WYE-H17166310

PATIENT
  Sex: Female
  Weight: 47.67 kg

DRUGS (1)
  1. PREMARIN [Suspect]
     Dosage: UNKNOWN
     Route: 065
     Dates: start: 19750101, end: 20060101

REACTIONS (11)
  - ARTHRITIS [None]
  - BREAKTHROUGH PAIN [None]
  - DRUG WITHDRAWAL SYNDROME [None]
  - FIBROMYALGIA [None]
  - HYPERTHYROIDISM [None]
  - MOOD ALTERED [None]
  - PELVIC FLOOR MUSCLE WEAKNESS [None]
  - PREMATURE AGEING [None]
  - RAYNAUD'S PHENOMENON [None]
  - SYSTEMIC LUPUS ERYTHEMATOSUS [None]
  - VULVOVAGINAL DRYNESS [None]
